FAERS Safety Report 21652074 (Version 1)
Quarter: 2022Q4

REPORT INFORMATION
  Report Type: Spontaneous
  Country: GB (occurrence: GB)
  Receive Date: 20221128
  Receipt Date: 20221128
  Transmission Date: 20230113
  Serious: Yes (Other)
  Sender: FDA-Public Use
  Company Number: None

PATIENT
  Age: 83 Year
  Sex: Female
  Weight: 65 kg

DRUGS (3)
  1. MOLNUPIRAVIR [Suspect]
     Active Substance: MOLNUPIRAVIR
     Dosage: UNK
     Dates: start: 20221111
  2. ELIQUIS [Concomitant]
     Active Substance: APIXABAN
  3. SOTALOL [Concomitant]
     Active Substance: SOTALOL

REACTIONS (1)
  - Procedural nausea [Recovered/Resolved]

NARRATIVE: CASE EVENT DATE: 20221111
